FAERS Safety Report 5005307-5 (Version None)
Quarter: 2006Q2

REPORT INFORMATION
  Report Type: 
  Country: None (occurrence: None)
  Receive Date: 20060518
  Receipt Date: 20060511
  Transmission Date: 20061013
  Serious: Yes (Hospitalization)
  Sender: FDA-Public Use
  Company Number: ES-GLAXOSMITHKLINE-B0424186A

PATIENT
  Age: 71 Year
  Sex: Female

DRUGS (1)
  1. AUGMENTIN '125' [Suspect]
     Indication: TOOTH INFECTION
     Dosage: 875MG UNKNOWN
     Route: 048

REACTIONS (1)
  - HEPATITIS CHOLESTATIC [None]
